FAERS Safety Report 17581006 (Version 1)
Quarter: 2020Q1

REPORT INFORMATION
  Report Type: Spontaneous
  Country: IT (occurrence: IT)
  Receive Date: 20200325
  Receipt Date: 20200325
  Transmission Date: 20200409
  Serious: Yes (Death)
  Sender: FDA-Public Use
  Company Number: IT-HQ SPECIALTY-IT-2020INT000023

PATIENT

DRUGS (2)
  1. CISPLATIN. [Suspect]
     Active Substance: CISPLATIN
     Indication: PLEURAL MESOTHELIOMA MALIGNANT
     Dosage: 75 MG/M2; OVER 2 HOURS ON DAY 1 OF EACH 21-DAY CYCLE
     Route: 042
  2. PEMETREXED. [Suspect]
     Active Substance: PEMETREXED
     Indication: PLEURAL MESOTHELIOMA MALIGNANT
     Dosage: 500 MG/M2; OVER 10 MINUTES ON DAY 1 OF EACH 21-DAY CYCLE
     Route: 042

REACTIONS (2)
  - Disease progression [Fatal]
  - Nephrotic syndrome [Fatal]
